FAERS Safety Report 11460214 (Version 2)
Quarter: 2015Q3

REPORT INFORMATION
  Report Type: Spontaneous
  Country: BR (occurrence: BR)
  Receive Date: 20150904
  Receipt Date: 20150911
  Transmission Date: 20151125
  Serious: Yes (Hospitalization, Other)
  Sender: FDA-Public Use
  Company Number: BR-ASTRAZENECA-2015SE84494

PATIENT
  Age: 698 Month
  Sex: Female
  Weight: 59 kg

DRUGS (2)
  1. CRESTOR [Suspect]
     Active Substance: ROSUVASTATIN CALCIUM
     Indication: BLOOD CHOLESTEROL INCREASED
     Dosage: DAILY
     Route: 048
     Dates: start: 2012
  2. DRUGS FOR BLOOD PRESSURE CONTROL [Concomitant]
     Indication: BLOOD PRESSURE INADEQUATELY CONTROLLED

REACTIONS (4)
  - Myocardial infarction [Recovering/Resolving]
  - Retching [Unknown]
  - Loss of consciousness [Unknown]
  - Chest pain [Unknown]

NARRATIVE: CASE EVENT DATE: 201508
